FAERS Safety Report 8615217-X (Version None)
Quarter: 2012Q3

REPORT INFORMATION
  Report Type: 
  Country: None (occurrence: None)
  Receive Date: 20120823
  Receipt Date: 20120820
  Transmission Date: 20120928
  Serious: Yes (Other)
  Sender: FDA-Public Use
  Company Number: US-BAYER-2012-000871

PATIENT
  Age: 63 Year
  Sex: Female

DRUGS (2)
  1. ALKA-SELTZER PLUS DAY,ALKA-SELTZER PLUS NIGHT [Suspect]
     Indication: COUGH
     Dosage: 1 DF, ONCE
     Route: 048
  2. VICODIN [Concomitant]
     Indication: MIGRAINE

REACTIONS (4)
  - HAEMORRHAGE [None]
  - DIARRHOEA HAEMORRHAGIC [None]
  - GASTRIC HAEMORRHAGE [None]
  - ABDOMINAL PAIN UPPER [None]
